FAERS Safety Report 16544817 (Version 1)
Quarter: 2019Q3

REPORT INFORMATION
  Report Type: Spontaneous
  Country: US (occurrence: US)
  Receive Date: 20190528
  Receipt Date: 20190528
  Transmission Date: 20191004
  Serious: Yes (Hospitalization)
  Sender: FDA-Public Use
  Company Number: None

PATIENT
  Age: 61 Year
  Sex: Female
  Weight: 120 kg

DRUGS (1)
  1. BACLOFEN 10MG [Suspect]
     Active Substance: BACLOFEN
     Indication: ARTHRALGIA
     Dosage: ?          OTHER FREQUENCY:QHS;???
     Route: 048
     Dates: start: 20190201

REACTIONS (1)
  - Neurotoxicity [None]

NARRATIVE: CASE EVENT DATE: 20190515
